FAERS Safety Report 18059880 (Version 2)
Quarter: 2020Q3

REPORT INFORMATION
  Report Type: Spontaneous
  Country: US (occurrence: US)
  Receive Date: 20200723
  Receipt Date: 20200924
  Transmission Date: 20201103
  Serious: Yes (Other)
  Sender: FDA-Public Use
  Company Number: US-AMGEN-USASP2020115637

PATIENT
  Age: 69 Year
  Sex: Female

DRUGS (1)
  1. PROLIA [Suspect]
     Active Substance: DENOSUMAB
     Indication: OSTEOPOROSIS POSTMENOPAUSAL
     Dosage: 60 MILLIGRAM, Q6MO
     Route: 058
     Dates: start: 20170511

REACTIONS (10)
  - Hip arthroplasty [Unknown]
  - Weight decreased [Unknown]
  - Pain [Unknown]
  - Blood parathyroid hormone decreased [Recovered/Resolved]
  - Arthralgia [Unknown]
  - Bone pain [Unknown]
  - Anaemia [Unknown]
  - Hypocalcaemia [Recovered/Resolved]
  - Fatigue [Unknown]
  - Blood iron decreased [Recovered/Resolved]

NARRATIVE: CASE EVENT DATE: 201910
